FAERS Safety Report 5563347-1 (Version None)
Quarter: 2007Q4

REPORT INFORMATION
  Report Type: 
  Country: None (occurrence: None)
  Receive Date: 20071212
  Receipt Date: 20071023
  Transmission Date: 20080405
  Serious: Yes (Hospitalization)
  Sender: FDA-Public Use
  Company Number: AZAUS200700287

PATIENT
  Age: 78 Year
  Sex: Female
  Weight: 64 kg

DRUGS (2)
  1. VIDAZA [Suspect]
     Indication: ACUTE MYELOID LEUKAEMIA
     Dosage: 75 MG/M2 (DAILY X 7 DAYS), SUBCUTANEOUS
     Route: 058
     Dates: start: 20070716, end: 20070722
  2. MGCD0103 [Suspect]
     Indication: ACUTE MYELOID LEUKAEMIA
     Dosage: 90 MG, 3 X WEEKLY, ORAL
     Route: 048
     Dates: start: 20070720, end: 20070810

REACTIONS (3)
  - CYSTITIS HAEMORRHAGIC [None]
  - PLATELET COUNT DECREASED [None]
  - URINARY TRACT INFECTION [None]
